FAERS Safety Report 26121911 (Version 1)
Quarter: 2025Q4

REPORT INFORMATION
  Report Type: Spontaneous
  Country: CN (occurrence: CN)
  Receive Date: 20251204
  Receipt Date: 20251204
  Transmission Date: 20260118
  Serious: Yes (Life-Threatening, Hospitalization, Other)
  Sender: ORGANON
  Company Number: CN-ORGANON-O2511CHN002361

PATIENT
  Age: 37 Year
  Sex: Female
  Weight: 55 kg

DRUGS (2)
  1. DIPROSPAN [Suspect]
     Active Substance: BETAMETHASONE DIPROPIONATE\BETAMETHASONE SODIUM PHOSPHATE
     Indication: Eczema
     Dosage: 7MG, QD, INTRAMUSCULAR INJECTION
     Dates: start: 20251119, end: 20251119
  2. DIPROSPAN [Suspect]
     Active Substance: BETAMETHASONE DIPROPIONATE\BETAMETHASONE SODIUM PHOSPHATE
     Indication: Dermatitis

REACTIONS (5)
  - Syncope [Recovering/Resolving]
  - Hypotension [Recovering/Resolving]
  - Unresponsive to stimuli [Recovering/Resolving]
  - Vomiting [Recovering/Resolving]
  - Paraesthesia [Recovering/Resolving]

NARRATIVE: CASE EVENT DATE: 20251119
